FAERS Safety Report 6271782 (Version 16)
Quarter: 2014Q1

REPORT INFORMATION
  Report Type: Spontaneous
  Country: US (occurrence: US)
  Receive Date: 20070327
  Receipt Date: 20140116
  Transmission Date: 20141002
  Serious: Yes (Other)
  Sender: FDA-Public Use
  Company Number: PHEH2007US03193

PATIENT
  Age: 63 Year
  Sex: Female

DRUGS (20)
  1. ZOMETA [Suspect]
     Indication: BREAST CANCER METASTATIC
     Dosage: 4 MG
     Route: 042
     Dates: start: 2001
  2. ZOMETA [Suspect]
     Dates: start: 200501, end: 2006
  3. POTASSIUM CHLORIDE [Concomitant]
  4. PENICILLIN ^GRUNENTHAL^ [Concomitant]
  5. CLINDAMYCIN [Concomitant]
  6. SERTRALINE [Concomitant]
  7. SIMVASTATIN [Concomitant]
  8. TUSSIONEX [Concomitant]
  9. DOXYCYCLINE [Concomitant]
  10. ECONAZOLE [Concomitant]
  11. TRIAMCINOLONE ACETONIDE DIPOTASSIUM PHOSPHATE [Concomitant]
  12. HYDROCODONE [Concomitant]
  13. CHLORHEXIDINE [Concomitant]
  14. FEMARA [Concomitant]
  15. LEVOTHYROXINE [Concomitant]
  16. AMOX [Concomitant]
  17. ZITHROMAX ^HEINRICH MACK^ [Concomitant]
  18. LIPITOR                                 /NET/ [Concomitant]
  19. CALCIUM [Concomitant]
  20. VITAMIN D [Concomitant]

REACTIONS (35)
  - Upper respiratory tract infection [Unknown]
  - Depression [Unknown]
  - Diverticulitis [Unknown]
  - Osteonecrosis of jaw [Unknown]
  - General physical health deterioration [Unknown]
  - Pain [Unknown]
  - Anxiety [Unknown]
  - Decreased interest [Unknown]
  - Muscle tightness [Unknown]
  - Denture wearer [Unknown]
  - Impaired healing [Unknown]
  - Primary sequestrum [Unknown]
  - Hepatic steatosis [Unknown]
  - Osteoarthritis [Unknown]
  - Pulmonary mass [Unknown]
  - Hyperlipidaemia [Unknown]
  - Hypothyroidism [Unknown]
  - Palpitations [Unknown]
  - Dyspnoea [Unknown]
  - Pulmonary embolism [Unknown]
  - Nephrolithiasis [Unknown]
  - Renal cyst [Unknown]
  - Deep vein thrombosis [Unknown]
  - Sinusitis [Unknown]
  - Bronchitis [Unknown]
  - Osteopenia [Unknown]
  - Osteosclerosis [Unknown]
  - Leiomyosarcoma metastatic [Unknown]
  - Metastases to spine [Not Recovered/Not Resolved]
  - Pleural disorder [Unknown]
  - Pleural calcification [Unknown]
  - Bone lesion [Unknown]
  - Diverticulum intestinal [Unknown]
  - Seborrhoeic keratosis [Unknown]
  - Atelectasis [Unknown]
